FAERS Safety Report 8068429-0 (Version None)
Quarter: 2012Q1

REPORT INFORMATION
  Report Type: 
  Country: None (occurrence: None)
  Receive Date: 20120124
  Receipt Date: 20111026
  Transmission Date: 20120608
  Serious: No
  Sender: FDA-Public Use
  Company Number: US-AMGEN-USASP2011055451

PATIENT
  Age: 78 Year
  Sex: Female

DRUGS (5)
  1. NITROFURANTOIN [Concomitant]
  2. ASTHMA [Concomitant]
  3. PROLIA [Suspect]
     Indication: OSTEOPOROSIS POSTMENOPAUSAL
     Dosage: UNK UNK, Q6MO
  4. ANTIBIOTIC [Concomitant]
  5. HEART [Concomitant]

REACTIONS (2)
  - URINARY TRACT INFECTION [None]
  - BRONCHITIS [None]
